FAERS Safety Report 9607743 (Version 2)
Quarter: 2013Q4

REPORT INFORMATION
  Report Type: Spontaneous
  Country: FR (occurrence: FR)
  Receive Date: 20131009
  Receipt Date: 20131009
  Transmission Date: 20140711
  Serious: Yes (Disabling)
  Sender: FDA-Public Use
  Company Number: FR-ASTELLAS-2013EU005559

PATIENT
  Age: 50 Year
  Sex: Female
  Weight: 80 kg

DRUGS (2)
  1. VESICARE [Suspect]
     Indication: HYPERTONIC BLADDER
     Dosage: 1 DF, UID/QD
     Route: 048
     Dates: start: 201301
  2. FIVASA                             /00747601/ [Concomitant]
     Indication: RECTAL ULCER HAEMORRHAGE
     Dosage: 800 MG, BID
     Route: 048
     Dates: start: 2010

REACTIONS (1)
  - Visual acuity reduced [Not Recovered/Not Resolved]
